FAERS Safety Report 10064380 (Version 1)
Quarter: 2014Q2

REPORT INFORMATION
  Report Type: Spontaneous
  Country: US (occurrence: None)
  Receive Date: 20140407
  Receipt Date: 20140407
  Transmission Date: 20141212
  Serious: Yes (Other)
  Sender: FDA-Public Use
  Company Number: None

PATIENT
  Age: 75 Year
  Sex: Male
  Weight: 96.9 kg

DRUGS (18)
  1. HEPARIN [Suspect]
     Indication: AORTIC VALVE REPLACEMENT
     Dosage: 10000 PER 10ML INTRAVENOUS?
     Route: 042
     Dates: start: 20140402, end: 20140402
  2. HEPARIN [Suspect]
     Indication: AORTIC VALVE REPLACEMENT
     Dosage: 10000 PER 10ML INTRAVENOUS
     Dates: start: 20140402, end: 20140402
  3. ASPIRIN [Concomitant]
  4. MULTIVITAMIN [Concomitant]
  5. MAXZIDE-25 [Concomitant]
  6. SIMVASTATIN [Concomitant]
  7. FLAXSEED OIL [Concomitant]
  8. VITAMIN C [Concomitant]
  9. FISH OIL [Concomitant]
  10. ENALAPRIL [Concomitant]
  11. METOPROLOL [Concomitant]
  12. NITROGLYCERIN OINTMENT [Concomitant]
  13. MYPIROCIN OINTMENT [Concomitant]
  14. LORAZEPAM [Concomitant]
  15. FENTANYL [Concomitant]
  16. VERSED [Concomitant]
  17. VANCOMYCIN [Concomitant]
  18. CEFTRIAXONE [Concomitant]

REACTIONS (2)
  - Drug effect decreased [None]
  - Product quality issue [None]
